FAERS Safety Report 23999652 (Version 1)
Quarter: 2024Q2

REPORT INFORMATION
  Report Type: Spontaneous
  Country: US (occurrence: None)
  Receive Date: 20240620
  Receipt Date: 20240620
  Transmission Date: 20240716
  Serious: No
  Sender: FDA-Public Use
  Company Number: None

PATIENT
  Sex: 0

DRUGS (1)
  1. LUMIGAN [Suspect]
     Active Substance: BIMATOPROST

REACTIONS (2)
  - Treatment failure [None]
  - Reaction to preservatives [None]
